FAERS Safety Report 13693866 (Version 2)
Quarter: 2017Q3

REPORT INFORMATION
  Report Type: Spontaneous
  Country: US (occurrence: US)
  Receive Date: 20170627
  Receipt Date: 20170720
  Transmission Date: 20171127
  Serious: No
  Sender: FDA-Public Use
  Company Number: US-TOLMAR, INC.-TOLG20170268

PATIENT
  Age: 72 Year
  Sex: Female
  Weight: 74.91 kg

DRUGS (2)
  1. ZOLOFT [Concomitant]
     Active Substance: SERTRALINE HYDROCHLORIDE
     Indication: DEPRESSION
     Dosage: UNKNOWN
     Route: 065
  2. METRONIDAZOLE. [Suspect]
     Active Substance: METRONIDAZOLE
     Indication: ROSACEA
     Dosage: APPLIED LIGHTLY TO AFFECTED AREAS
     Route: 061
     Dates: start: 20170604, end: 20170607

REACTIONS (5)
  - Head discomfort [Recovered/Resolved]
  - Allergic pharyngitis [Recovered/Resolved]
  - Dyspnoea [Recovered/Resolved]
  - Allergic respiratory symptom [Recovered/Resolved]
  - Headache [Recovered/Resolved]

NARRATIVE: CASE EVENT DATE: 201706
